FAERS Safety Report 21473849 (Version 2)
Quarter: 2022Q4

REPORT INFORMATION
  Report Type: Spontaneous
  Country: IT (occurrence: IT)
  Receive Date: 20221018
  Receipt Date: 20221129
  Transmission Date: 20230112
  Serious: Yes (Hospitalization)
  Sender: FDA-Public Use
  Company Number: IT-Accord-279719

PATIENT
  Age: 72 Year
  Sex: Male
  Weight: 78 kg

DRUGS (30)
  1. OXALIPLATIN [Suspect]
     Active Substance: OXALIPLATIN
     Indication: Product used for unknown indication
     Dosage: 1Q2W
     Dates: start: 20220908
  2. OXALIPLATIN [Suspect]
     Active Substance: OXALIPLATIN
     Dosage: 1Q2W
     Dates: start: 20220825, end: 20220825
  3. EPCORITAMAB [Suspect]
     Active Substance: EPCORITAMAB
     Indication: Product used for unknown indication
     Dosage: PRIMING DOSE, SINGLE?0.16 MG
     Route: 058
     Dates: start: 20220825, end: 20220825
  4. EPCORITAMAB [Suspect]
     Active Substance: EPCORITAMAB
     Dosage: INTERMEDIATE DOSE, SINGLE?0.8 MG
     Route: 058
     Dates: start: 20220901, end: 20220901
  5. EPCORITAMAB [Suspect]
     Active Substance: EPCORITAMAB
     Dosage: FULL DOSE, WEEKLY?0.8 MG
     Route: 058
     Dates: start: 20220908
  6. GEMCITABINE HYDROCHLORIDE [Suspect]
     Active Substance: GEMCITABINE HYDROCHLORIDE
     Indication: Product used for unknown indication
     Dosage: 1Q2W?1000 MILLIGRAM(S)/SQ. METER(MG/M2)
     Dates: start: 20220908
  7. GEMCITABINE HYDROCHLORIDE [Suspect]
     Active Substance: GEMCITABINE HYDROCHLORIDE
     Dosage: 1Q2W?1000 MILLIGRAM(S)/SQ. METER(MG/M2)
     Dates: start: 20220825, end: 20220825
  8. GRANISETRON [Concomitant]
     Active Substance: GRANISETRON
     Indication: Product used for unknown indication
     Dates: start: 20220825, end: 20220825
  9. LEVOFLOXACIN [Concomitant]
     Active Substance: LEVOFLOXACIN
     Indication: Product used for unknown indication
     Dates: start: 20220829
  10. ACETAMINOPHEN [Concomitant]
     Active Substance: ACETAMINOPHEN
     Indication: Product used for unknown indication
     Dosage: 1000 MG
     Route: 048
     Dates: start: 20220915
  11. ACETAMINOPHEN [Concomitant]
     Active Substance: ACETAMINOPHEN
     Dosage: 1000 MG
     Route: 048
     Dates: start: 20220908
  12. ACETAMINOPHEN [Concomitant]
     Active Substance: ACETAMINOPHEN
     Dosage: 1000 MG
     Route: 048
     Dates: start: 20220901
  13. ACETAMINOPHEN [Concomitant]
     Active Substance: ACETAMINOPHEN
     Dosage: 1000 MG
     Route: 048
     Dates: start: 20220825
  14. RABEPRAZOLE [Concomitant]
     Active Substance: RABEPRAZOLE
     Indication: Product used for unknown indication
     Dates: start: 20220825, end: 20220829
  15. AVODART [Concomitant]
     Active Substance: DUTASTERIDE
     Indication: Product used for unknown indication
     Dates: start: 20220825
  16. SILODOSIN [Concomitant]
     Active Substance: SILODOSIN
     Indication: Product used for unknown indication
     Dates: start: 20220825
  17. ENOXAPARIN [Concomitant]
     Active Substance: ENOXAPARIN
     Indication: Product used for unknown indication
     Dates: start: 20220825
  18. METHYLPREDNISOLONE [Concomitant]
     Active Substance: METHYLPREDNISOLONE
     Indication: Product used for unknown indication
     Dates: start: 20220825, end: 20220825
  19. CHLORPHENIRAMINE MALEATE [Concomitant]
     Active Substance: CHLORPHENIRAMINE MALEATE
     Indication: Product used for unknown indication
     Dates: start: 20220901
  20. CHLORPHENIRAMINE MALEATE [Concomitant]
     Active Substance: CHLORPHENIRAMINE MALEATE
     Dates: start: 20220908
  21. CHLORPHENIRAMINE MALEATE [Concomitant]
     Active Substance: CHLORPHENIRAMINE MALEATE
     Dates: start: 20220825
  22. CHLORPHENIRAMINE MALEATE [Concomitant]
     Active Substance: CHLORPHENIRAMINE MALEATE
     Dates: start: 20220915
  23. FILGRASTIM [Concomitant]
     Active Substance: FILGRASTIM
     Indication: Product used for unknown indication
     Dates: start: 20220828
  24. FOLIC ACID [Concomitant]
     Active Substance: FOLIC ACID
     Indication: Product used for unknown indication
     Dates: start: 20220827
  25. PANTOPRAZOLE [Concomitant]
     Active Substance: PANTOPRAZOLE
     Indication: Product used for unknown indication
     Dates: start: 20220830
  26. FUROSEMIDE [Concomitant]
     Active Substance: FUROSEMIDE
     Indication: Product used for unknown indication
     Dates: start: 20220825, end: 20220825
  27. PREDNISONE [Concomitant]
     Active Substance: PREDNISONE
     Indication: Product used for unknown indication
     Route: 048
     Dates: start: 20220826, end: 20220828
  28. ACYCLOVIR [Concomitant]
     Active Substance: ACYCLOVIR
     Indication: Product used for unknown indication
     Dates: start: 20220824
  29. SULFAMETHOXAZOLE\TRIMETHOPRIM [Concomitant]
     Active Substance: SULFAMETHOXAZOLE\TRIMETHOPRIM
     Indication: Product used for unknown indication
     Dates: start: 20220826
  30. ALLOPURINOL [Concomitant]
     Active Substance: ALLOPURINOL
     Indication: Product used for unknown indication
     Dates: start: 20220824

REACTIONS (1)
  - Cytokine release syndrome [Recovered/Resolved]

NARRATIVE: CASE EVENT DATE: 20220912
